FAERS Safety Report 11086954 (Version 1)
Quarter: 2015Q2

REPORT INFORMATION
  Report Type: Spontaneous
  Country: US (occurrence: US)
  Receive Date: 20150504
  Receipt Date: 20150504
  Transmission Date: 20150821
  Serious: No
  Sender: FDA-Public Use
  Company Number: US-009507513-1504USA024536

PATIENT
  Age: 47 Year
  Sex: Male

DRUGS (3)
  1. AMITRIPTYLINE HYDROCHLORIDE. [Suspect]
     Active Substance: AMITRIPTYLINE HYDROCHLORIDE
     Indication: NEURALGIA
     Route: 048
  2. FENTANYL. [Suspect]
     Active Substance: FENTANYL
     Indication: NEURALGIA
     Dosage: 100 MICROGRAM, QH
  3. GABAPENTIN. [Suspect]
     Active Substance: GABAPENTIN
     Indication: NEURALGIA

REACTIONS (1)
  - Drug ineffective [Recovered/Resolved]
